FAERS Safety Report 7427631-9 (Version None)
Quarter: 2011Q2

REPORT INFORMATION
  Report Type: 
  Country: None (occurrence: None)
  Receive Date: 20110421
  Receipt Date: 20110413
  Transmission Date: 20111010
  Serious: Yes (Other)
  Sender: FDA-Public Use
  Company Number: US-ASTRAZENECA-2009UW14355

PATIENT
  Age: 18192 Day
  Sex: Male
  Weight: 106.6 kg

DRUGS (11)
  1. SEROQUEL [Suspect]
     Route: 048
     Dates: start: 20010101
  2. EFFEXOR [Concomitant]
     Indication: DEPRESSION
     Dates: start: 20050915, end: 20060916
  3. RISPERDAL [Concomitant]
     Indication: DEPRESSION
     Dates: start: 20010101
  4. SEROQUEL [Suspect]
     Indication: POST-TRAUMATIC STRESS DISORDER
     Route: 048
     Dates: start: 20050915, end: 20060916
  5. SEROQUEL [Suspect]
     Indication: DEPRESSION
     Route: 048
     Dates: start: 20050915, end: 20060916
  6. SEROQUEL [Suspect]
     Route: 048
     Dates: start: 20010101
  7. DIPHENHYDRAMINE HCL [Concomitant]
     Indication: SLEEP DISORDER
     Dates: start: 20060727, end: 20060826
  8. SEROQUEL [Suspect]
     Route: 048
     Dates: start: 20081015
  9. SEROQUEL [Suspect]
     Route: 048
     Dates: start: 20081015
  10. RISPERDAL [Concomitant]
     Indication: POST-TRAUMATIC STRESS DISORDER
     Dates: start: 20010101
  11. EFFEXOR [Concomitant]
     Dates: start: 20081015

REACTIONS (2)
  - DIABETIC RETINOPATHY [None]
  - TYPE 2 DIABETES MELLITUS [None]
